FAERS Safety Report 9583435 (Version 1)
Quarter: 2013Q4

REPORT INFORMATION
  Report Type: Spontaneous
  Country: US (occurrence: US)
  Receive Date: 20131002
  Receipt Date: 20131002
  Transmission Date: 20140711
  Serious: No
  Sender: FDA-Public Use
  Company Number: US-AMGEN-USASP2013046572

PATIENT
  Age: 53 Year
  Sex: Male
  Weight: 86 kg

DRUGS (7)
  1. ENBREL [Suspect]
     Indication: PRODUCT USED FOR UNKNOWN INDICATION
     Dosage: 50 MG, 2 TIMES/WK FOR THREE MONTHS THEN WEEKLY THREAFTER
     Route: 058
  2. HYDROCORT                          /00028602/ [Concomitant]
     Dosage: 20 MG, UNK
     Route: 048
  3. FLUDROCORTISONE [Concomitant]
     Dosage: 0.1 MG, UNK
     Route: 048
  4. ZOLOFT [Concomitant]
     Dosage: 25 MG, UNK
     Route: 048
  5. PRILOSEC                           /00661201/ [Concomitant]
     Dosage: 10 MG, UNK
     Route: 048
  6. MULTIVITAMINS, PLAIN [Concomitant]
     Dosage: UNK
     Route: 048
  7. VITAMIN D                          /00107901/ [Concomitant]
     Dosage: 400 UNIT, UNK
     Route: 048

REACTIONS (2)
  - Injection site bruising [Unknown]
  - Injection site erythema [Unknown]
